FAERS Safety Report 5920106-5 (Version None)
Quarter: 2008Q4

REPORT INFORMATION
  Report Type: 
  Country: None (occurrence: None)
  Receive Date: 20081015
  Receipt Date: 20081015
  Transmission Date: 20090506
  Serious: No
  Sender: FDA-Public Use
  Company Number: None

PATIENT
  Sex: Male
  Weight: 107.9561 kg

DRUGS (1)
  1. EXCHANGE SELECT ARTIFICIAL TEARS - KC PHARMACEUTICALS, INC [Suspect]
     Indication: DRY EYE
     Dosage: 2 DROPS PRN EYE
     Dates: start: 20081014

REACTIONS (6)
  - ABNORMAL SENSATION IN EYE [None]
  - BLEPHAROSPASM [None]
  - EYE PAIN [None]
  - EYELID FUNCTION DISORDER [None]
  - INSTILLATION SITE IRRITATION [None]
  - VISION BLURRED [None]
